FAERS Safety Report 8896314 (Version 1)
Quarter: 2012Q4

REPORT INFORMATION
  Report Type: Spontaneous
  Country: US (occurrence: None)
  Receive Date: 20121106
  Receipt Date: 20121106
  Transmission Date: 20130627
  Serious: Yes (Hospitalization)
  Sender: FDA-Public Use
  Company Number: None

PATIENT
  Age: 69 Year
  Sex: Male
  Weight: 74.7 kg

DRUGS (2)
  1. ASPIRIN [Suspect]
     Indication: CARDIAC DISORDER
     Dates: start: 20100518, end: 20121009
  2. ASPIRIN [Suspect]
     Indication: PROPHYLAXIS
     Dates: start: 20100518, end: 20121009

REACTIONS (6)
  - Haemorrhage [None]
  - Melaena [None]
  - Hypotension [None]
  - Haemoglobin decreased [None]
  - Drug prescribing error [None]
  - Haematemesis [None]
